FAERS Safety Report 5653155-5 (Version None)
Quarter: 2008Q1

REPORT INFORMATION
  Report Type: 
  Country: None (occurrence: None)
  Receive Date: 20080131
  Receipt Date: 20071016
  Transmission Date: 20080703
  Serious: No
  Sender: FDA-Public Use
  Company Number: US200710004452

PATIENT
  Age: 64 Year
  Sex: Female
  Weight: 111.1 kg

DRUGS (4)
  1. BYETTA [Suspect]
     Indication: TYPE 2 DIABETES MELLITUS
     Dosage: 5 UG, 2/D, SUBCUTANEOUS ; 10 UG, 2/D, SUBCUTANEOUS
     Route: 058
     Dates: start: 20070902, end: 20071001
  2. BYETTA [Suspect]
     Indication: TYPE 2 DIABETES MELLITUS
     Dosage: 5 UG, 2/D, SUBCUTANEOUS ; 10 UG, 2/D, SUBCUTANEOUS
     Route: 058
     Dates: start: 20071002, end: 20071001
  3. LANTUS [Concomitant]
  4. GLIMEPIRIDE [Concomitant]

REACTIONS (12)
  - ASTHENIA [None]
  - BLOOD GLUCOSE DECREASED [None]
  - BLOOD GLUCOSE INCREASED [None]
  - CONSTIPATION [None]
  - DIZZINESS [None]
  - INCOHERENT [None]
  - INJECTION SITE PAIN [None]
  - MALAISE [None]
  - NAUSEA [None]
  - PRURITUS [None]
  - VOMITING [None]
  - WEIGHT DECREASED [None]
